FAERS Safety Report 9565479 (Version 1)
Quarter: 2013Q3

REPORT INFORMATION
  Report Type: Spontaneous
  Country: US (occurrence: US)
  Receive Date: 20130930
  Receipt Date: 20130930
  Transmission Date: 20140515
  Serious: No
  Sender: FDA-Public Use
  Company Number: US-009507513-1309USA010858

PATIENT
  Sex: Female

DRUGS (2)
  1. SAPHRIS [Suspect]
     Dosage: 5 MG, HS; RAPID DISSOLVE
     Route: 048
     Dates: start: 201308, end: 2013
  2. SAPHRIS [Suspect]
     Dosage: 10 MG, HS
     Route: 048
     Dates: start: 2013, end: 2013

REACTIONS (3)
  - Akathisia [Recovering/Resolving]
  - Extrapyramidal disorder [Unknown]
  - Underdose [Unknown]
